FAERS Safety Report 8695918 (Version 3)
Quarter: 2013Q4

REPORT INFORMATION
  Report Type: Spontaneous
  Country: US (occurrence: US)
  Receive Date: 20120801
  Receipt Date: 20131107
  Transmission Date: 20140711
  Serious: Yes (Hospitalization, Other)
  Sender: FDA-Public Use
  Company Number: US-MSD-1207USA009932

PATIENT
  Age: 56 Year
  Sex: Male

DRUGS (8)
  1. ZOCOR [Suspect]
     Dosage: 40 MG, UNK
     Route: 048
  2. PREDNISOLONE [Suspect]
     Dosage: 35 MG, UNK
     Route: 048
  3. PREDNISOLONE [Suspect]
     Dosage: 30 UNK, UNK
     Route: 048
  4. FOLIC ACID [Concomitant]
  5. OMEPRAZOLE [Concomitant]
  6. ALBUTEROL [Concomitant]
  7. AMOXICILLIN [Concomitant]
  8. CYANOCOBALAMIN [Concomitant]

REACTIONS (17)
  - Pain [Unknown]
  - Platelet count decreased [Unknown]
  - Blood bicarbonate decreased [Unknown]
  - Tachycardia [Unknown]
  - Amylase increased [Unknown]
  - Condition aggravated [Unknown]
  - Blood pressure increased [Unknown]
  - Hyperkalaemia [Unknown]
  - Blood albumin decreased [Unknown]
  - Haemodialysis [Unknown]
  - Rhabdomyolysis [Unknown]
  - Delirium tremens [Unknown]
  - Chronic obstructive pulmonary disease [Unknown]
  - White blood cell count increased [Unknown]
  - Alanine aminotransferase increased [Unknown]
  - Dialysis [Unknown]
  - Renal failure acute [Unknown]
